FAERS Safety Report 24010755 (Version 1)
Quarter: 2024Q2

REPORT INFORMATION
  Report Type: Spontaneous
  Country: US (occurrence: None)
  Receive Date: 20240625
  Receipt Date: 20240625
  Transmission Date: 20240716
  Serious: Yes (Disabling)
  Sender: FDA-Public Use
  Company Number: None

PATIENT
  Age: 32 Year
  Sex: Female
  Weight: 63.96 kg

DRUGS (7)
  1. NURTEC ODT [Suspect]
     Active Substance: RIMEGEPANT SULFATE
     Indication: Migraine
     Dosage: OTHER QUANTITY : 8 ODTS;?FREQUENCY : EVERY OTHER DAY;?
     Route: 048
     Dates: start: 20240514, end: 20240621
  2. PROPRANOLOL [Concomitant]
     Active Substance: PROPRANOLOL HYDROCHLORIDE
  3. KLONOPIN [Concomitant]
     Active Substance: CLONAZEPAM
  4. RIZATRIPTAN [Concomitant]
     Active Substance: RIZATRIPTAN
  5. MAGNESIUM [Concomitant]
     Active Substance: MAGNESIUM
  6. RIBOFLAVIN [Concomitant]
     Active Substance: RIBOFLAVIN
  7. VITAMIN D3 [Concomitant]
     Active Substance: CHOLECALCIFEROL

REACTIONS (7)
  - Anxiety [None]
  - Panic attack [None]
  - Insomnia [None]
  - Crying [None]
  - Emotional distress [None]
  - Fatigue [None]
  - Therapy cessation [None]

NARRATIVE: CASE EVENT DATE: 20240604
